FAERS Safety Report 5850857-2 (Version None)
Quarter: 2008Q3

REPORT INFORMATION
  Report Type: 
  Country: None (occurrence: None)
  Receive Date: 20080818
  Receipt Date: 20080804
  Transmission Date: 20090109
  Serious: No
  Sender: FDA-Public Use
  Company Number: 003661

PATIENT
  Age: 70 Year
  Sex: Male

DRUGS (2)
  1. PLETAL [Suspect]
     Route: 048
  2. ANPLAG (SARPOGRELATE HYDROCHLORIDE) [Concomitant]

REACTIONS (2)
  - ALANINE AMINOTRANSFERASE INCREASED [None]
  - ASPARTATE AMINOTRANSFERASE INCREASED [None]
